FAERS Safety Report 7436483 (Version 2)
Quarter: 2012Q4

REPORT INFORMATION
  Report Type: Report from Study
  Country: JP (occurrence: JP)
  Receive Date: 20100625
  Receipt Date: 20121123
  Transmission Date: 20130627
  Serious: Yes (Hospitalization)
  Sender: FDA-Public Use
  Company Number: PHHO2009JP01436

PATIENT
  Age: 59 None
  Sex: Female
  Weight: 39 kg

DRUGS (9)
  1. EVEROLIMUS [Suspect]
     Indication: PANCREATIC NEUROENDOCRINE TUMOUR
     Dosage: 10 mg daily
     Route: 048
     Dates: start: 20081121, end: 20090123
  2. EVEROLIMUS [Suspect]
     Dosage: 10 mg daily
     Route: 048
     Dates: start: 20090206
  3. MEILAX [Concomitant]
     Indication: INSOMNIA
  4. TAKEPRON [Concomitant]
     Indication: GASTRIC ULCER
  5. GRANDAXIN [Concomitant]
     Indication: INSOMNIA
  6. MAGLAX [Concomitant]
     Indication: CONSTIPATION
  7. MERISLON [Concomitant]
     Indication: VERTIGO
  8. MUCOSTA [Concomitant]
     Indication: GASTRIC ULCER
  9. MOHRUS [Concomitant]
     Dosage: UNK
     Dates: start: 20081010

REACTIONS (3)
  - Interstitial lung disease [Recovering/Resolving]
  - Cough [Recovering/Resolving]
  - Chest X-ray abnormal [Recovering/Resolving]
